FAERS Safety Report 8721940 (Version 2)
Quarter: 2014Q1

REPORT INFORMATION
  Report Type: Report from Study
  Country: CA (occurrence: CA)
  Receive Date: 20120814
  Receipt Date: 20140312
  Transmission Date: 20141002
  Serious: Yes (Other)
  Sender: FDA-Public Use
  Company Number: PHHY2012CA069805

PATIENT
  Sex: Female

DRUGS (3)
  1. ACLASTA [Suspect]
     Indication: OSTEOPOROSIS
     Dosage: UNK UKN, UNK
     Route: 042
     Dates: start: 20111024
  2. ACLASTA [Suspect]
     Dosage: UNK UKN, UNK
     Route: 042
     Dates: start: 20121130
  3. BOTOX [Concomitant]
     Indication: OESOPHAGEAL ACHALASIA
     Dosage: UNK UKN, TWICE A YEAR

REACTIONS (3)
  - Myasthenia gravis [Unknown]
  - Fatigue [Unknown]
  - Limb discomfort [Unknown]
